FAERS Safety Report 18346337 (Version 1)
Quarter: 2020Q4

REPORT INFORMATION
  Report Type: Spontaneous
  Country: US (occurrence: US)
  Receive Date: 20201005
  Receipt Date: 20201005
  Transmission Date: 20210114
  Serious: No
  Sender: FDA-Public Use
  Company Number: US-BAUSCH-BL-2020-027409

PATIENT
  Age: 35 Year
  Sex: Female

DRUGS (1)
  1. PROPARACAINE HYDROCHLORIDE OPHTHALMIC SOLUTION USP 0.5% [Suspect]
     Active Substance: PROPARACAINE HYDROCHLORIDE
     Indication: INTRAOCULAR PRESSURE TEST
     Dosage: 1 DROP IN EACH EYE
     Route: 047
     Dates: start: 20200918, end: 20200918

REACTIONS (1)
  - Drug screen positive [Unknown]

NARRATIVE: CASE EVENT DATE: 202009
